FAERS Safety Report 9750010 (Version 1)
Quarter: 2013Q4

REPORT INFORMATION
  Report Type: Spontaneous
  Country: DE (occurrence: DE)
  Receive Date: 20131212
  Receipt Date: 20131212
  Transmission Date: 20140711
  Serious: No
  Sender: FDA-Public Use
  Company Number: DE-GILEAD-DE-CVT-090506

PATIENT
  Age: 76 Year
  Sex: Female

DRUGS (3)
  1. RANEXA [Suspect]
     Indication: CORONARY ARTERY DISEASE
     Route: 048
     Dates: start: 20090618, end: 20090807
  2. MICARDIS PLUS [Concomitant]
     Route: 048
  3. NEBILET [Concomitant]
     Route: 048

REACTIONS (1)
  - Haematuria [Recovered/Resolved]
